FAERS Safety Report 5814763-1 (Version None)
Quarter: 2008Q3

REPORT INFORMATION
  Report Type: 
  Country: None (occurrence: None)
  Receive Date: 20080718
  Receipt Date: 20080709
  Transmission Date: 20090109
  Serious: Yes (Other)
  Sender: FDA-Public Use
  Company Number: CA-JNJFOC-20080300999

PATIENT
  Sex: Female
  Weight: 49 kg

DRUGS (7)
  1. REMICADE [Suspect]
     Indication: CROHN'S DISEASE
     Route: 042
  2. VSL3 [Concomitant]
     Route: 051
  3. LOVENOX [Concomitant]
     Indication: CAVERNOUS SINUS THROMBOSIS
  4. CODEINE SUL TAB [Concomitant]
     Route: 051
  5. MAGNESIUM [Concomitant]
     Route: 051
  6. VITAMIN D [Concomitant]
     Route: 051
  7. CALCIUM [Concomitant]
     Route: 051

REACTIONS (3)
  - CHEST X-RAY ABNORMAL [None]
  - DYSPNOEA EXERTIONAL [None]
  - INTERSTITIAL LUNG DISEASE [None]
